FAERS Safety Report 5395069-4 (Version None)
Quarter: 2007Q3

REPORT INFORMATION
  Report Type: 
  Country: None (occurrence: None)
  Receive Date: 20070718
  Receipt Date: 20061020
  Transmission Date: 20080115
  Serious: Yes (Other)
  Sender: FDA-Public Use
  Company Number: 2006130852

PATIENT
  Age: 46 Year
  Sex: Female
  Weight: 94.8018 kg

DRUGS (4)
  1. CELEBREX [Suspect]
     Indication: ARTHRITIS
     Dosage: 600 MG (200 MG, 3 IN 1 D)
     Dates: start: 19990305
  2. CELEBREX [Suspect]
     Indication: BACK PAIN
     Dosage: 600 MG (200 MG, 3 IN 1 D)
     Dates: start: 19990305
  3. CELEBREX [Suspect]
     Indication: INTERVERTEBRAL DISC DEGENERATION
     Dosage: 600 MG (200 MG, 3 IN 1 D)
     Dates: start: 19990305
  4. CELEBREX [Suspect]
     Indication: NECK PAIN
     Dosage: 600 MG (200 MG, 3 IN 1 D)
     Dates: start: 19990305

REACTIONS (2)
  - DEPRESSION [None]
  - MYOCARDIAL INFARCTION [None]
